FAERS Safety Report 25152528 (Version 2)
Quarter: 2025Q2

REPORT INFORMATION
  Report Type: Spontaneous
  Country: US (occurrence: US)
  Receive Date: 20250402
  Receipt Date: 20250416
  Transmission Date: 20250717
  Serious: Yes (Other)
  Sender: TEVA
  Company Number: US-TEVA-VS-3314371

PATIENT
  Age: 54 Year
  Sex: Female

DRUGS (16)
  1. BUDESONIDE [Suspect]
     Active Substance: BUDESONIDE
     Indication: Colitis microscopic
     Route: 065
  2. ATROPINE [Concomitant]
     Active Substance: ATROPINE
     Indication: Colitis microscopic
     Route: 065
  3. HERBALS\PLANTAGO OVATA LEAF [Concomitant]
     Active Substance: HERBALS\PLANTAGO OVATA LEAF
     Indication: Colitis microscopic
     Route: 065
  4. CHOLESTYRAMINE [Concomitant]
     Active Substance: CHOLESTYRAMINE
     Indication: Colitis microscopic
     Route: 065
  5. ADALIMUMAB [Suspect]
     Active Substance: ADALIMUMAB
     Indication: Colitis microscopic
     Route: 065
  6. COLESTIPOL [Concomitant]
     Active Substance: COLESTIPOL
     Indication: Colitis microscopic
     Route: 065
  7. RIFAXIMIN [Concomitant]
     Active Substance: RIFAXIMIN
     Indication: Colitis microscopic
     Route: 065
  8. AZATHIOPRINE [Concomitant]
     Active Substance: AZATHIOPRINE
     Indication: Colitis microscopic
     Route: 065
  9. VEDOLIZUMAB [Suspect]
     Active Substance: VEDOLIZUMAB
     Indication: Colitis microscopic
     Route: 065
  10. LOPERAMIDE [Concomitant]
     Active Substance: LOPERAMIDE
     Indication: Colitis microscopic
     Route: 065
  11. NALTREXONE [Concomitant]
     Active Substance: NALTREXONE
     Indication: Colitis microscopic
     Route: 065
  12. USTEKINUMAB [Suspect]
     Active Substance: USTEKINUMAB
     Indication: Colitis microscopic
     Route: 065
  13. ELUXADOLINE [Concomitant]
     Active Substance: ELUXADOLINE
     Indication: Colitis microscopic
     Route: 065
  14. CANNABIS SATIVA FLOWERING TOP [Concomitant]
     Active Substance: CANNABIS SATIVA FLOWERING TOP
     Indication: Colitis microscopic
     Route: 065
  15. BISMUTH [Concomitant]
     Active Substance: BISMUTH SUBSALICYLATE
     Indication: Colitis microscopic
     Route: 065
  16. DIPHENOXYLATE [Concomitant]
     Active Substance: DIPHENOXYLATE
     Indication: Colitis microscopic
     Route: 065

REACTIONS (4)
  - Drug ineffective [Unknown]
  - Oedema [Recovering/Resolving]
  - Injection related reaction [Recovering/Resolving]
  - Arthralgia [Recovering/Resolving]
